FAERS Safety Report 23145735 (Version 1)
Quarter: 2023Q4

REPORT INFORMATION
  Report Type: Spontaneous
  Country: US (occurrence: US)
  Receive Date: 20231103
  Receipt Date: 20231103
  Transmission Date: 20240110
  Serious: No
  Sender: FDA-Public Use
  Company Number: US-BoehringerIngelheim-2023-BI-270995

PATIENT
  Sex: Female

DRUGS (2)
  1. JARDIANCE [Suspect]
     Active Substance: EMPAGLIFLOZIN
     Indication: Product used for unknown indication
     Dosage: UNKNOWN, UNKNOWN
  2. TRULICITY [Suspect]
     Active Substance: DULAGLUTIDE
     Indication: Diabetes mellitus
     Dosage: UNKNOWN, UNKNOWN

REACTIONS (6)
  - Feeling abnormal [Unknown]
  - Fungal infection [Unknown]
  - Dyspepsia [Unknown]
  - Vomiting [Unknown]
  - Eructation [Unknown]
  - Diarrhoea [Unknown]
